FAERS Safety Report 18730699 (Version 2)
Quarter: 2021Q1

REPORT INFORMATION
  Report Type: Spontaneous
  Country: US (occurrence: US)
  Receive Date: 20210112
  Receipt Date: 20210201
  Transmission Date: 20210419
  Serious: No
  Sender: FDA-Public Use
  Company Number: US-JNJFOC-20210106346

PATIENT
  Age: 57 Year
  Sex: Female

DRUGS (2)
  1. SPRAVATO [Suspect]
     Active Substance: ESKETAMINE
     Indication: MAJOR DEPRESSION
     Dates: start: 20200915
  2. SPRAVATO [Suspect]
     Active Substance: ESKETAMINE
     Indication: POST-TRAUMATIC STRESS DISORDER

REACTIONS (1)
  - Product complaint [Unknown]

NARRATIVE: CASE EVENT DATE: 20210105
